FAERS Safety Report 5489087-5 (Version None)
Quarter: 2007Q4

REPORT INFORMATION
  Report Type: 
  Country: None (occurrence: None)
  Receive Date: 20071005
  Receipt Date: 20070713
  Transmission Date: 20080405
  Serious: Yes (Other)
  Sender: FDA-Public Use
  Company Number: PHEH2007US09969

PATIENT
  Age: 78 Year
  Sex: Female
  Weight: 77.6 kg

DRUGS (9)
  1. TEKTURNA [Suspect]
     Indication: HYPERTENSION
     Dosage: 150 MG, QD, ORAL
     Route: 048
     Dates: start: 20070612, end: 20070614
  2. DYRENIUM (TRIAMTERENE) [Concomitant]
  3. AMLODIPINE BESYLATE [Concomitant]
  4. INDAPAMIDE [Concomitant]
  5. OMEPRAZOLE [Concomitant]
  6. COREG [Concomitant]
  7. FISH OIL (FISH OIL) [Concomitant]
  8. ASPIRIN [Concomitant]
  9. POTASSIUM (POTASSIUM) [Concomitant]

REACTIONS (1)
  - SWELLING FACE [None]
